FAERS Safety Report 5664892-0 (Version None)
Quarter: 2008Q1

REPORT INFORMATION
  Report Type: 
  Country: None (occurrence: None)
  Receive Date: 20080314
  Receipt Date: 20080304
  Transmission Date: 20080703
  Serious: Yes (Life-Threatening, Hospitalization)
  Sender: FDA-Public Use
  Company Number: GB-PFIZER INC-2007102640

PATIENT
  Age: 52 Year
  Sex: Male
  Weight: 80 kg

DRUGS (4)
  1. AMLODIPINE [Suspect]
  2. ATENOLOL [Suspect]
  3. LOSARTAN POTASSIUM [Suspect]
     Route: 048
  4. ZOPICLONE [Suspect]

REACTIONS (4)
  - ATRIOVENTRICULAR BLOCK FIRST DEGREE [None]
  - BRADYCARDIA [None]
  - HYPOTENSION [None]
  - OVERDOSE [None]
